FAERS Safety Report 24704899 (Version 2)
Quarter: 2024Q4

REPORT INFORMATION
  Report Type: Spontaneous
  Country: CZ (occurrence: CZ)
  Receive Date: 20241206
  Receipt Date: 20241212
  Transmission Date: 20250114
  Serious: Yes (Hospitalization)
  Sender: Haleon PLC
  Company Number: CZ-002147023-NVSC2024CZ230425

PATIENT
  Age: 8 Year
  Sex: Male

DRUGS (4)
  1. TERBINAFINE [Suspect]
     Active Substance: TERBINAFINE\TERBINAFINE HYDROCHLORIDE
     Indication: Kerion
     Route: 065
  2. TERBINAFINE [Suspect]
     Active Substance: TERBINAFINE\TERBINAFINE HYDROCHLORIDE
     Dosage: FOR 12 WEEKS
     Route: 065
  3. AMOXICILLIN [Concomitant]
     Active Substance: AMOXICILLIN
     Indication: Product used for unknown indication
  4. NAFTIFINE [Concomitant]
     Active Substance: NAFTIFINE
     Indication: Product used for unknown indication

REACTIONS (2)
  - Kerion [Recovering/Resolving]
  - Condition aggravated [Recovering/Resolving]
